FAERS Safety Report 8820509 (Version 1)
Quarter: 2012Q4

REPORT INFORMATION
  Report Type: 
  Country: US (occurrence: US)
  Receive Date: 20121002
  Receipt Date: 20121002
  Transmission Date: 20130627
  Serious: Yes (Other)
  Sender: FDA-Public Use
  Company Number: US-COVIDIEN/TYCO HEALTHCARE/MALLINCKRODT-T201203490

PATIENT
  Age: 80 Year
  Sex: Female

DRUGS (8)
  1. EXALGO EXTENDED RELEASE [Suspect]
     Indication: PAIN
     Dosage: 8 mg qd
  2. ENDOCET [Concomitant]
     Dosage: 7.5/325 qid
     Dates: start: 2010, end: 201208
  3. NEXIUM                             /01479302/ [Concomitant]
  4. VESICARE [Concomitant]
  5. SERTRALINE [Concomitant]
     Dosage: 100 mg
  6. LOVASTATIN [Concomitant]
  7. LISINOPRIL [Concomitant]
  8. FOSAMAX [Concomitant]
     Dosage: Weekly

REACTIONS (1)
  - Hallucination [Unknown]
